FAERS Safety Report 19986134 (Version 1)
Quarter: 2021Q4

REPORT INFORMATION
  Report Type: Spontaneous
  Country: US (occurrence: US)
  Receive Date: 20211022
  Receipt Date: 20211022
  Transmission Date: 20220303
  Serious: Yes (Death)
  Sender: FDA-Public Use
  Company Number: US-APELLIS-00846

PATIENT
  Age: 23 Year
  Sex: Male
  Weight: 69.2 kg

DRUGS (27)
  1. EMPAVELI [Suspect]
     Active Substance: PEGCETACOPLAN
     Indication: Overlap syndrome
     Route: 058
     Dates: start: 20210707, end: 20210725
  2. 3274093 (GLOBALC3Mar21): Daptomycin [Concomitant]
     Indication: Product used for unknown indication
     Route: 042
  3. 1265193 (GLOBALC3Mar21): Furosemide [Concomitant]
     Indication: Product used for unknown indication
     Route: 041
  4. 4517537 (GLOBALC3Mar21): Ketamine [Concomitant]
     Indication: Product used for unknown indication
     Route: 042
  5. 1327394 (GLOBALC3Mar21): Norepinephrine [Concomitant]
     Indication: Product used for unknown indication
     Route: 041
  6. 1328814 (GLOBALC3Mar21): Vasopressin [Concomitant]
     Indication: Product used for unknown indication
     Route: 041
  7. 4624164 (GLOBALC3Mar21): Cyanocobalamin [Concomitant]
     Indication: Product used for unknown indication
     Dosage: 1000 MCG
     Route: 048
  8. 1325695 (GLOBALC3Mar21): Dexamethasone [Concomitant]
     Indication: Product used for unknown indication
     Route: 042
  9. 1325861 (GLOBALC3Mar21): Dobutamine [Concomitant]
     Indication: Product used for unknown indication
     Route: 041
  10. 2851841 (GLOBALC3Mar21): Duloxetine [Concomitant]
     Indication: Product used for unknown indication
     Route: 048
  11. 1329055 (GLOBALC3Mar21): Fentanyl [Concomitant]
     Indication: Product used for unknown indication
     Route: 041
  12. 1326251 (GLOBALC3Mar21): Ganciclovir [Concomitant]
     Indication: Product used for unknown indication
     Route: 042
  13. 1326766 (GLOBALC3Mar21): Lactulose [Concomitant]
     Indication: Product used for unknown indication
     Route: 048
  14. 1782793 (GLOBALC3Mar21): Levofloxacin [Concomitant]
     Indication: Product used for unknown indication
     Route: 048
  15. 1326814 (GLOBALC3Mar21): Lorazepam [Concomitant]
     Indication: Product used for unknown indication
     Route: 041
  16. 2786895 (GLOBALC3Mar21): Magnesium Oxide [Concomitant]
     Indication: Product used for unknown indication
     Dosage: TIME INTERVAL: 0.33333333 DAYS
     Route: 048
  17. 4158352 (GLOBALC3Mar21): Meropenem [Concomitant]
     Indication: Product used for unknown indication
  18. 1610535 (GLOBALC3Mar21): Polyethylene Glycol 3350 [Concomitant]
     Route: 048
  19. 1327976 (GLOBALC3Mar21): Propofol [Concomitant]
     Indication: Product used for unknown indication
     Route: 041
  20. 2927592 (GLOBALC3Mar21): Atovaquone [Concomitant]
     Indication: Product used for unknown indication
     Route: 048
  21. 2356610 (GLOBALC3Mar21): Calcium Carbonate [Concomitant]
     Indication: Product used for unknown indication
  22. 1268236 (GLOBALC3Mar21): Omeprazole [Concomitant]
     Indication: Product used for unknown indication
     Route: 048
  23. 1328777 (GLOBALC3Mar21): Ursodiol [Concomitant]
     Indication: Product used for unknown indication
     Route: 048
  24. 1608866 (GLOBALC3Mar21): Carvedilol [Concomitant]
     Indication: Product used for unknown indication
     Route: 048
  25. 1325608 (GLOBALC3Mar21): Folic Acid [Concomitant]
     Indication: Product used for unknown indication
     Route: 048
  26. 1324794 (GLOBALC3Mar21): Liposomal Amphotericin B [Concomitant]
     Indication: Product used for unknown indication
     Route: 042
  27. 1327788 (GLOBALC3Mar21): Phytonadione [Concomitant]
     Indication: Product used for unknown indication
     Route: 048

REACTIONS (5)
  - Haemophagocytic lymphohistiocytosis [Fatal]
  - Off label use [Unknown]
  - Circumoral swelling [Unknown]
  - Thrombotic microangiopathy [Fatal]
  - Disease complication [Fatal]

NARRATIVE: CASE EVENT DATE: 20210704
